FAERS Safety Report 23378707 (Version 3)
Quarter: 2024Q1

REPORT INFORMATION
  Report Type: Report from Study
  Country: CA (occurrence: CA)
  Receive Date: 20240108
  Receipt Date: 20240118
  Transmission Date: 20240410
  Serious: No
  Sender: FDA-Public Use
  Company Number: CA-TAKEDA-2024TUS001062

PATIENT
  Age: 49 Year
  Sex: Female

DRUGS (6)
  1. VEDOLIZUMAB [Suspect]
     Active Substance: VEDOLIZUMAB
     Indication: Crohn^s disease
     Dosage: 300 MILLIGRAM
     Route: 042
     Dates: start: 20210223
  2. VEDOLIZUMAB [Suspect]
     Active Substance: VEDOLIZUMAB
     Dosage: 300 MILLIGRAM, Q4WEEKS
     Route: 042
     Dates: start: 20220208
  3. DEXILANT [Suspect]
     Active Substance: DEXLANSOPRAZOLE
     Indication: Product used for unknown indication
     Dosage: 60 MILLIGRAM
     Route: 065
  4. Salofalk [Concomitant]
     Dosage: 4 GRAM, QD
     Dates: start: 2014
  5. ALMOTRIPTAN [Concomitant]
     Active Substance: ALMOTRIPTAN
     Dosage: 12.5 MILLIGRAM
     Route: 048
  6. D [Concomitant]
     Dosage: UNK
     Route: 048

REACTIONS (5)
  - Faeces soft [Unknown]
  - Malaise [Unknown]
  - Off label use [Unknown]
  - Sinusitis [Recovered/Resolved]
  - Bronchitis [Recovered/Resolved]

NARRATIVE: CASE EVENT DATE: 20220208
